FAERS Safety Report 6254484-7 (Version None)
Quarter: 2009Q2

REPORT INFORMATION
  Report Type: 
  Country: None (occurrence: None)
  Receive Date: 20090630
  Receipt Date: 20090108
  Transmission Date: 20091009
  Serious: Yes (Other)
  Sender: FDA-Public Use
  Company Number: US-SEPTODONT-200900006

PATIENT
  Sex: Female

DRUGS (1)
  1. ARTICAINE HYDROCHLORIDE WITH EPINEPHRINE 1:100000 [Suspect]
     Indication: LOCAL ANAESTHESIA
     Dosage: 2.5 CARTRIDGES DENTAL
     Dates: start: 20081205, end: 20081205

REACTIONS (5)
  - MUSCLE SPASMS [None]
  - OEDEMA MOUTH [None]
  - PARAESTHESIA [None]
  - TENDERNESS [None]
  - TRISMUS [None]
